FAERS Safety Report 5342890-4 (Version None)
Quarter: 2007Q2

REPORT INFORMATION
  Report Type: 
  Country: None (occurrence: None)
  Receive Date: 20070416
  Receipt Date: 20070215
  Transmission Date: 20071010
  Serious: No
  Sender: FDA-Public Use
  Company Number: 2007SP000516

PATIENT
  Age: 43 Year
  Sex: Male

DRUGS (3)
  1. LUNESTA [Suspect]
     Indication: INSOMNIA
     Dosage: 2 MG;HS;ORAL
     Route: 048
     Dates: start: 20070212, end: 20070214
  2. POTASSIUM ACETATE [Concomitant]
  3. WATER PILLS [Concomitant]

REACTIONS (1)
  - INSOMNIA [None]
